FAERS Safety Report 8729675 (Version 7)
Quarter: 2013Q4

REPORT INFORMATION
  Report Type: Report from Study
  Country: CA (occurrence: CA)
  Receive Date: 20120817
  Receipt Date: 20131217
  Transmission Date: 20140711
  Serious: Yes (Other)
  Sender: FDA-Public Use
  Company Number: PHHY2012CA027058

PATIENT
  Age: 47 Year
  Sex: Male

DRUGS (2)
  1. GILENYA [Suspect]
     Indication: RELAPSING-REMITTING MULTIPLE SCLEROSIS
     Dosage: 0.5 MG, QD
     Route: 048
     Dates: start: 20120307, end: 20120309
  2. GILENYA [Suspect]
     Dosage: 0.5 MG, QD
     Route: 048
     Dates: start: 20120326

REACTIONS (13)
  - Eye disorder [Unknown]
  - Presbyopia [Unknown]
  - Colour blindness [Not Recovered/Not Resolved]
  - Optic atrophy [Unknown]
  - Dry skin [Recovering/Resolving]
  - Swelling face [Recovering/Resolving]
  - Acne [Recovering/Resolving]
  - Nausea [Unknown]
  - Erythema [Recovering/Resolving]
  - Visual acuity reduced [Recovering/Resolving]
  - Eczema [Recovering/Resolving]
  - Dizziness [Recovering/Resolving]
  - Drug administration error [Unknown]
